FAERS Safety Report 8017529-X (Version None)
Quarter: 2011Q4

REPORT INFORMATION
  Report Type: 
  Country: None (occurrence: None)
  Receive Date: 20111228
  Receipt Date: 20111228
  Transmission Date: 20120403
  Serious: Yes (Other)
  Sender: FDA-Public Use
  Company Number: None

PATIENT
  Age: 61 Year
  Sex: Male
  Weight: 81.1939 kg

DRUGS (1)
  1. CIPRO [Suspect]
     Indication: DIVERTICULUM
     Dates: start: 20091226

REACTIONS (5)
  - NEUROPATHY PERIPHERAL [None]
  - PARAESTHESIA [None]
  - TENDONITIS [None]
  - BURNING SENSATION [None]
  - TOXICITY TO VARIOUS AGENTS [None]
